FAERS Safety Report 19931641 (Version 2)
Quarter: 2021Q4

REPORT INFORMATION
  Report Type: Report from Study
  Country: US (occurrence: US)
  Receive Date: 20211007
  Receipt Date: 20211022
  Transmission Date: 20220303
  Serious: Yes (Hospitalization)
  Sender: FDA-Public Use
  Company Number: US-EISAI MEDICAL RESEARCH-EC-2021-100783

PATIENT
  Age: 69 Year
  Sex: Female
  Weight: 89.3 kg

DRUGS (16)
  1. LENVIMA [Suspect]
     Active Substance: LENVATINIB
     Indication: Endometrial cancer
     Route: 048
     Dates: start: 20210813
  2. KEYTRUDA [Concomitant]
     Active Substance: PEMBROLIZUMAB
  3. PROZAC [Concomitant]
     Active Substance: FLUOXETINE HYDROCHLORIDE
  4. OMEPRAZOLE [Concomitant]
     Active Substance: OMEPRAZOLE
  5. ATENOLOL [Concomitant]
     Active Substance: ATENOLOL
  6. LOVASTATIN [Concomitant]
     Active Substance: LOVASTATIN
  7. CLONIDINE [Concomitant]
     Active Substance: CLONIDINE
  8. LORAZEPAM [Concomitant]
     Active Substance: LORAZEPAM
  9. IBUPROFEN [Concomitant]
     Active Substance: IBUPROFEN
  10. MAGNESIUM [Concomitant]
     Active Substance: MAGNESIUM
  11. LABETALOL [Concomitant]
     Active Substance: LABETALOL\LABETALOL HYDROCHLORIDE
  12. MULTI-VITAMIN DAILY [Concomitant]
  13. ALDACTONE [Concomitant]
     Active Substance: SPIRONOLACTONE
  14. NORVASC [Concomitant]
     Active Substance: AMLODIPINE BESYLATE
  15. METOCLOPRAMIDE [Concomitant]
     Active Substance: METOCLOPRAMIDE
  16. SPIRONOLACTONE [Concomitant]
     Active Substance: SPIRONOLACTONE

REACTIONS (3)
  - Hypertension [Recovered/Resolved]
  - Hypotension [Not Recovered/Not Resolved]
  - Fatigue [Not Recovered/Not Resolved]

NARRATIVE: CASE EVENT DATE: 20210101
